FAERS Safety Report 5212263-3 (Version None)
Quarter: 2007Q1

REPORT INFORMATION
  Report Type: 
  Country: None (occurrence: None)
  Receive Date: 20070118
  Receipt Date: 20070115
  Transmission Date: 20070707
  Serious: Yes (Other)
  Sender: FDA-Public Use
  Company Number: US-ROXANE LABORATORIES, INC-2007-BP-00574RO

PATIENT
  Age: 37 Year
  Sex: Female

DRUGS (2)
  1. PREDNISONE [Suspect]
     Indication: MYASTHENIA GRAVIS
     Dosage: 100 MG DAILY
  2. MESTINON [Suspect]
     Indication: MYASTHENIA GRAVIS

REACTIONS (2)
  - DERMATITIS [None]
  - RASH ERYTHEMATOUS [None]
